FAERS Safety Report 9479421 (Version 2)
Quarter: 2013Q4

REPORT INFORMATION
  Report Type: Report from Study
  Country: BR (occurrence: BR)
  Receive Date: 20130827
  Receipt Date: 20131018
  Transmission Date: 20140711
  Serious: Yes (Hospitalization, Other)
  Sender: FDA-Public Use
  Company Number: BR-ROCHE-1265639

PATIENT
  Sex: Male
  Weight: 89 kg

DRUGS (5)
  1. INTERFERON ALFA-2A [Suspect]
     Indication: HEPATITIS C
     Route: 065
     Dates: start: 2010, end: 2011
  2. RIBAVIRIN [Suspect]
     Indication: HEPATITIS C
     Route: 065
     Dates: start: 2010, end: 2011
  3. METFORMIN [Concomitant]
     Indication: DIABETES MELLITUS
     Route: 065
  4. GLIBENCLAMIDE [Concomitant]
     Indication: DIABETES MELLITUS
     Route: 065
  5. INSULIN [Concomitant]
     Indication: DIABETES MELLITUS
     Dosage: IN THE MORNING AND AT NIGHT
     Route: 065

REACTIONS (5)
  - Exostosis [Recovered/Resolved]
  - Intervertebral disc protrusion [Recovered/Resolved]
  - Cataract [Recovered/Resolved]
  - Drug ineffective [Unknown]
  - Pain in extremity [Not Recovered/Not Resolved]
